FAERS Safety Report 9632235 (Version 1)
Quarter: 2013Q4

REPORT INFORMATION
  Report Type: Spontaneous
  Country: US (occurrence: None)
  Receive Date: 20131018
  Receipt Date: 20131018
  Transmission Date: 20140711
  Serious: Yes (Death)
  Sender: FDA-Public Use
  Company Number: None

PATIENT
  Age: 54 Year
  Sex: Female

DRUGS (1)
  1. 20MEQ KCL IN D5 AND NS [Suspect]
     Dates: start: 20131004

REACTIONS (6)
  - Supraventricular tachycardia [None]
  - Ventricular tachycardia [None]
  - Grand mal convulsion [None]
  - Body temperature increased [None]
  - Hypotension [None]
  - Nodal rhythm [None]
